FAERS Safety Report 8673943 (Version 4)
Quarter: 2014Q2

REPORT INFORMATION
  Report Type: Spontaneous
  Country: BR (occurrence: BR)
  Receive Date: 20120719
  Receipt Date: 20140602
  Transmission Date: 20141212
  Serious: Yes (Hospitalization, Other)
  Sender: FDA-Public Use
  Company Number: BR-MSD-1207BRA005955

PATIENT
  Age: 43 Year
  Sex: Male
  Weight: 82 kg

DRUGS (6)
  1. VICTRELIS [Suspect]
     Indication: HEPATITIS C
     Dosage: 800 MG, TID
     Route: 048
     Dates: start: 20120404, end: 20120707
  2. PEG-INTRON [Suspect]
     Indication: HEPATITIS C
     Dosage: 1.5 MICROGRAM, QW
     Route: 058
     Dates: start: 20120314, end: 20120707
  3. PEG-INTRON [Suspect]
     Dosage: 1.5 MICROGRAM, QW
     Route: 058
     Dates: start: 20120714
  4. RIBAVIRIN [Suspect]
     Indication: HEPATITIS C
     Dosage: 1250 G, QD
     Route: 048
     Dates: start: 20120314, end: 20120707
  5. RIBAVIRIN [Suspect]
     Dosage: 1250 MG, QD
     Route: 048
     Dates: start: 20120714
  6. PEGASYS [Concomitant]
     Indication: HEPATITIS
     Dosage: UNK UNK, QW
     Dates: start: 201203, end: 20120707

REACTIONS (1)
  - Pancreatitis acute [Recovered/Resolved]
